FAERS Safety Report 5346048-4 (Version None)
Quarter: 2007Q2

REPORT INFORMATION
  Report Type: 
  Country: None (occurrence: None)
  Receive Date: 20070423
  Receipt Date: 20061013
  Transmission Date: 20071010
  Serious: Yes (Other)
  Sender: FDA-Public Use
  Company Number: WAES 0507USA01551

PATIENT
  Age: 45 Year
  Sex: Female
  Weight: 49.8957 kg

DRUGS (4)
  1. SINGULAIR [Suspect]
     Indication: ASTHMA
     Dosage: 10 MG/DAILY/PO
     Route: 048
     Dates: start: 20030910, end: 20030910
  2. SINGULAIR [Suspect]
     Indication: RHINITIS SEASONAL
     Dosage: 10 MG/DAILY/PO
     Route: 048
     Dates: start: 20030910, end: 20030910
  3. CLARINEX [Concomitant]
  4. FLONASE [Concomitant]

REACTIONS (1)
  - CONVULSION [None]
